FAERS Safety Report 5677065-2 (Version None)
Quarter: 2008Q1

REPORT INFORMATION
  Report Type: 
  Country: None (occurrence: None)
  Receive Date: 20080324
  Receipt Date: 20080311
  Transmission Date: 20080703
  Serious: Yes (Hospitalization, Other)
  Sender: FDA-Public Use
  Company Number: US-AMGEN-QUU267263

PATIENT
  Sex: Male

DRUGS (8)
  1. ARANESP [Suspect]
     Indication: RENAL FAILURE CHRONIC
     Dates: start: 20070301
  2. IRON [Concomitant]
  3. NORVASC [Concomitant]
  4. LASIX [Concomitant]
  5. SYNTHROID [Concomitant]
  6. ALLOPURINOL [Concomitant]
  7. GABAPENTIN [Concomitant]
  8. TOPROL-XL [Concomitant]

REACTIONS (3)
  - GOUT [None]
  - KNEE ARTHROPLASTY [None]
  - PAIN [None]
